FAERS Safety Report 6102975-1 (Version None)
Quarter: 2009Q1

REPORT INFORMATION
  Report Type: 
  Country: None (occurrence: None)
  Receive Date: 20090305
  Receipt Date: 20090223
  Transmission Date: 20090719
  Serious: Yes (Congenital Anomaly)
  Sender: FDA-Public Use
  Company Number: PHHY2009FR07012

PATIENT
  Sex: Female
  Weight: 2.57 kg

DRUGS (3)
  1. TEGRETOL [Suspect]
     Indication: EPILEPSY
     Dosage: 400 MG, BID
     Route: 064
  2. DI-HYDAN [Suspect]
     Indication: EPILEPSY
     Dosage: 100 MG, UNK
     Route: 064
  3. EPITOMAX [Suspect]
     Indication: EPILEPSY
     Dosage: 100 MG, UNK
     Route: 064

REACTIONS (9)
  - CONGENITAL CARDIOVASCULAR ANOMALY [None]
  - CONGENITAL NAIL DISORDER [None]
  - DYSMORPHISM [None]
  - GINGIVAL HYPERPLASIA [None]
  - HIP DYSPLASIA [None]
  - HYPERTELORISM OF ORBIT [None]
  - LIMB MALFORMATION [None]
  - LIP DISORDER [None]
  - MICRODACTYLY [None]
